FAERS Safety Report 8286682-5 (Version None)
Quarter: 2012Q2

REPORT INFORMATION
  Report Type: 
  Country: None (occurrence: None)
  Receive Date: 20120416
  Receipt Date: 20120413
  Transmission Date: 20120825
  Serious: Yes (Death)
  Sender: FDA-Public Use
  Company Number: SE-JNJFOC-20120313856

PATIENT

DRUGS (25)
  1. RITUXIMAB [Suspect]
     Indication: DIFFUSE LARGE B-CELL LYMPHOMA
     Route: 065
  2. DOXORUBICIN HCL [Suspect]
     Dosage: CYCLE 1
     Route: 042
  3. CYCLOPHOSPHAMIDE [Suspect]
     Indication: DIFFUSE LARGE B-CELL LYMPHOMA
     Route: 065
  4. CYCLOPHOSPHAMIDE [Suspect]
     Route: 065
  5. CYCLOPHOSPHAMIDE [Suspect]
     Route: 065
  6. DOXORUBICIN HCL [Suspect]
     Dosage: CYCLE 3
     Route: 042
  7. CYCLOPHOSPHAMIDE [Suspect]
     Route: 065
  8. VINCRISTINE [Suspect]
     Route: 065
  9. NEUPOGEN [Concomitant]
     Route: 065
  10. DOXORUBICIN HCL [Suspect]
     Dosage: CYCLE 3
     Route: 065
  11. DOXORUBICIN HCL [Suspect]
     Dosage: CYCLE 1
     Route: 065
  12. DOXORUBICIN HCL [Suspect]
     Indication: DIFFUSE LARGE B-CELL LYMPHOMA
     Dosage: CYCLE 2
     Route: 042
  13. PREDNISONE TAB [Suspect]
     Indication: DIFFUSE LARGE B-CELL LYMPHOMA
     Route: 065
  14. PREDNISONE TAB [Suspect]
     Route: 065
  15. RITUXIMAB [Suspect]
     Route: 065
  16. VINCRISTINE [Suspect]
     Route: 065
  17. VINCRISTINE [Suspect]
     Route: 065
  18. PREDNISONE TAB [Suspect]
     Route: 065
  19. DOXORUBICIN HCL [Suspect]
     Dosage: CYCLE 2
     Route: 065
  20. RITUXIMAB [Suspect]
     Route: 065
  21. DOXORUBICIN HCL [Suspect]
     Dosage: CYCLE 4
     Route: 042
  22. DOXORUBICIN HCL [Suspect]
     Dosage: CYCLE 4
     Route: 065
  23. VINCRISTINE [Suspect]
     Indication: DIFFUSE LARGE B-CELL LYMPHOMA
     Route: 065
  24. PREDNISONE TAB [Suspect]
     Route: 065
  25. RITUXIMAB [Suspect]
     Route: 065

REACTIONS (1)
  - SEPSIS [None]
